FAERS Safety Report 22657446 (Version 1)
Quarter: 2023Q2

REPORT INFORMATION
  Report Type: Spontaneous
  Country: None (occurrence: CN)
  Receive Date: 20230630
  Receipt Date: 20230630
  Transmission Date: 20230722
  Serious: Yes (Other)
  Sender: FDA-Public Use
  Company Number: CN-Jiangsu Hengrui Medicine Co., Ltd.-2143265

PATIENT
  Age: 54 Year
  Sex: Male

DRUGS (7)
  1. CYCLOPHOSPHAMIDE [Suspect]
     Active Substance: CYCLOPHOSPHAMIDE
     Indication: Plasmacytoma
  2. ETOPOSIDE [Suspect]
     Active Substance: ETOPOSIDE
  3. BORTEZOMIB [Suspect]
     Active Substance: BORTEZOMIB
     Route: 058
  4. LENALIDOMIDE [Suspect]
     Active Substance: LENALIDOMIDE
     Route: 048
  5. DEXAMETHASONE [Suspect]
     Active Substance: DEXAMETHASONE
     Route: 048
  6. CISPLATIN [Suspect]
     Active Substance: CISPLATIN
  7. DOXORUBICIN [Suspect]
     Active Substance: DOXORUBICIN

REACTIONS (8)
  - Neuropathy peripheral [Unknown]
  - Neutropenia [Unknown]
  - Thrombocytopenia [Recovering/Resolving]
  - Intestinal obstruction [Recovering/Resolving]
  - Anaemia [Unknown]
  - Dizziness [Unknown]
  - Lethargy [Unknown]
  - Fatigue [Unknown]
